FAERS Safety Report 14612782 (Version 1)
Quarter: 2018Q1

REPORT INFORMATION
  Report Type: Spontaneous
  Country: JP (occurrence: JP)
  Receive Date: 20180308
  Receipt Date: 20180308
  Transmission Date: 20180509
  Serious: Yes (Hospitalization, Other)
  Sender: FDA-Public Use
  Company Number: JP-BRISTOL-MYERS SQUIBB COMPANY-BMS-2018-010070

PATIENT
  Age: 64 Year
  Sex: Female

DRUGS (13)
  1. BAKTAR [Concomitant]
     Active Substance: SULFAMETHOXAZOLE\TRIMETHOPRIM
     Indication: PROPHYLAXIS
     Dosage: 2 DF, BID
     Route: 048
     Dates: start: 20170713
  2. GASTER [Concomitant]
     Active Substance: FAMOTIDINE
     Indication: RHEUMATOID ARTHRITIS
     Dosage: 1 DF, BID
     Route: 048
     Dates: start: 20170831
  3. LOSARTAN K [Concomitant]
     Active Substance: LOSARTAN POTASSIUM
     Indication: HYPERTENSION
     Dosage: 1 DF, QD
     Route: 048
  4. TRAZENTA [Concomitant]
     Active Substance: LINAGLIPTIN
     Indication: DIABETES MELLITUS
     Dosage: 1 DF, QD
     Route: 048
  5. ROCEPHIN [Concomitant]
     Active Substance: CEFTRIAXONE SODIUM
     Indication: PNEUMONIA
     Dosage: UNK
     Route: 041
     Dates: start: 20171204
  6. ORENCIA [Suspect]
     Active Substance: ABATACEPT
     Indication: RHEUMATOID ARTHRITIS
     Dosage: 125 MG, QD
     Route: 058
     Dates: start: 20170714, end: 20180118
  7. MINOMYCIN [Concomitant]
     Active Substance: MINOCYCLINE HYDROCHLORIDE
     Indication: PNEUMONIA
     Dosage: UNK
     Route: 065
  8. AMLODIPINE                         /00972402/ [Concomitant]
     Active Substance: AMLODIPINE BESYLATE
     Indication: HYPERTENSION
     Dosage: 1 DF, QD
     Route: 048
  9. CRAVIT [Suspect]
     Active Substance: LEVOFLOXACIN
     Indication: PNEUMONIA
     Dosage: UNK
     Route: 065
  10. LOXONIN [Concomitant]
     Active Substance: LOXOPROFEN SODIUM
     Indication: RHEUMATOID ARTHRITIS
     Dosage: 1 DF, TID
     Route: 048
     Dates: start: 20170713
  11. REBAMIPIDE [Concomitant]
     Active Substance: REBAMIPIDE
     Indication: RHEUMATOID ARTHRITIS
     Dosage: 1 DF, TID
     Route: 048
     Dates: start: 20170713
  12. PREDNISOLONE. [Concomitant]
     Active Substance: PREDNISOLONE
     Indication: RHEUMATOID ARTHRITIS
     Dosage: 1 DF, QD
     Route: 048
     Dates: start: 20180118
  13. ZOLPIDEM TARTRATE. [Concomitant]
     Active Substance: ZOLPIDEM TARTRATE
     Indication: INSOMNIA
     Dosage: 1 MG, QD
     Route: 048

REACTIONS (2)
  - Liver disorder [Recovered/Resolved]
  - Pneumonia [Recovered/Resolved]

NARRATIVE: CASE EVENT DATE: 20171214
